FAERS Safety Report 10910578 (Version 2)
Quarter: 2017Q1

REPORT INFORMATION
  Report Type: Spontaneous
  Country: US (occurrence: US)
  Receive Date: 20150312
  Receipt Date: 20170320
  Transmission Date: 20170428
  Serious: No
  Sender: FDA-Public Use
  Company Number: US-SA-2014SA178668

PATIENT
  Age: 67 Year
  Sex: Male
  Weight: 73.48 kg

DRUGS (4)
  1. NASACORT ALLERGY 24HR [Suspect]
     Active Substance: TRIAMCINOLONE ACETONIDE
     Indication: SEASONAL ALLERGY
     Dosage: FORM NASAL SPRAY,DOSE 1 SPRAY PER NOSTRIL PER DAY
     Route: 045
     Dates: start: 20141119
  2. NASACORT ALLERGY 24HR [Suspect]
     Active Substance: TRIAMCINOLONE ACETONIDE
     Indication: HEADACHE
     Dosage: FORM NASAL SPRAY,DOSE 1 SPRAY PER NOSTRIL PER DAY
     Route: 045
     Dates: start: 20141119
  3. NASACORT ALLERGY 24HR [Suspect]
     Active Substance: TRIAMCINOLONE ACETONIDE
     Indication: HEADACHE
     Dosage: FORM: NASAL SPRAY,DOSE 1 SPRAY PER NOSTRIL PER DAY
     Route: 045
     Dates: start: 20150329, end: 20150425
  4. NASACORT ALLERGY 24HR [Suspect]
     Active Substance: TRIAMCINOLONE ACETONIDE
     Indication: SEASONAL ALLERGY
     Dosage: FORM: NASAL SPRAY,DOSE 1 SPRAY PER NOSTRIL PER DAY
     Route: 045
     Dates: start: 20150329, end: 20150425

REACTIONS (2)
  - Eustachian tube obstruction [Recovered/Resolved]
  - Headache [Recovered/Resolved]
